FAERS Safety Report 17858029 (Version 72)
Quarter: 2024Q1

REPORT INFORMATION
  Report Type: Spontaneous
  Country: CN (occurrence: GB)
  Receive Date: 20200604
  Receipt Date: 20240329
  Transmission Date: 20240410
  Serious: Yes (Death, Hospitalization, Other)
  Sender: FDA-Public Use
  Company Number: GB-MYLANLABS-2019M1117808

PATIENT
  Age: 61 Year
  Sex: Male
  Weight: 62 kg

DRUGS (231)
  1. ARIPIPRAZOLE [Suspect]
     Active Substance: ARIPIPRAZOLE
     Indication: Schizophrenia
     Dosage: 5 MILLIGRAM
     Route: 048
  2. OLANZAPINE [Suspect]
     Active Substance: OLANZAPINE
     Indication: Schizophrenia
     Dosage: UNK
     Route: 065
  3. OLANZAPINE [Suspect]
     Active Substance: OLANZAPINE
     Dosage: 10 MILLIGRAM
     Route: 048
  4. OLANZAPINE [Suspect]
     Active Substance: OLANZAPINE
     Dosage: 1 MILLIGRAM
     Route: 048
  5. OLANZAPINE [Suspect]
     Active Substance: OLANZAPINE
     Dosage: 15 MILLIGRAM
     Route: 048
     Dates: start: 20040217
  6. OLANZAPINE [Suspect]
     Active Substance: OLANZAPINE
     Dosage: 15 MILLIGRAM
     Route: 048
     Dates: start: 20060704
  7. OLANZAPINE [Suspect]
     Active Substance: OLANZAPINE
     Dosage: 2.5 MILLIGRAM, ONCE A DAY
     Route: 048
     Dates: start: 20080823
  8. OLANZAPINE [Suspect]
     Active Substance: OLANZAPINE
     Dosage: 1 MILLIGRAM
     Route: 048
  9. RISPERIDONE [Suspect]
     Active Substance: RISPERIDONE
     Indication: Schizophrenia
     Dosage: 2 MILLIGRAM, TWO TIMES A DAY (2 MG, BID)
     Route: 065
  10. RISPERIDONE [Suspect]
     Active Substance: RISPERIDONE
     Dosage: 3 MILLIGRAM, TWO TIMES A DAY (3 MG, BID)
     Route: 048
  11. RISPERIDONE [Suspect]
     Active Substance: RISPERIDONE
     Dosage: 1 MILLIGRAM, ONCE A DAY (1 MILLIGRAM, DAILY)
     Route: 065
  12. RISPERIDONE [Suspect]
     Active Substance: RISPERIDONE
     Dosage: 4 MILLIGRAM, ONCE A DAY
     Route: 048
  13. RISPERIDONE [Suspect]
     Active Substance: RISPERIDONE
     Dosage: 1 GRAM, ONCE A DAY
     Route: 048
  14. RISPERIDONE [Suspect]
     Active Substance: RISPERIDONE
     Dosage: 6 MILLIGRAM, ONCE A DAY
     Route: 048
  15. RISPERIDONE [Suspect]
     Active Substance: RISPERIDONE
     Dosage: 4 MILLIGRAM, ONCE A DAY
     Route: 065
  16. RISPERIDONE [Suspect]
     Active Substance: RISPERIDONE
     Dosage: 12 MILLIGRAM, ONCE A DAY
     Route: 048
  17. RISPERIDONE [Suspect]
     Active Substance: RISPERIDONE
     Dosage: 4 MILLIGRAM, ONCE A DAY
     Route: 065
  18. ZUCLOPENTHIXOL [Suspect]
     Active Substance: ZUCLOPENTHIXOL
     Indication: Schizophrenia
     Dosage: 400 MILLIGRAM, EVERY WEEK
     Route: 065
     Dates: end: 20040217
  19. ZUCLOPENTHIXOL [Suspect]
     Active Substance: ZUCLOPENTHIXOL
     Dosage: 400 MILLIGRAM, EVERY WEEK
     Route: 065
     Dates: start: 20030204, end: 20040217
  20. ZUCLOPENTHIXOL [Suspect]
     Active Substance: ZUCLOPENTHIXOL
     Dosage: 400 MILLIGRAM, EVERY WEEK
     Route: 065
     Dates: start: 20040217, end: 20040601
  21. ZUCLOPENTHIXOL [Suspect]
     Active Substance: ZUCLOPENTHIXOL
     Dosage: 400 MILLIGRAM, EVERY WEEK
     Route: 065
     Dates: start: 20041018, end: 20041018
  22. ZUCLOPENTHIXOL [Suspect]
     Active Substance: ZUCLOPENTHIXOL
     Dosage: 300 MILLIGRAM, ONCE A DAY
     Route: 030
     Dates: start: 20091009
  23. ZUCLOPENTHIXOL [Suspect]
     Active Substance: ZUCLOPENTHIXOL
     Dosage: 400 MG, QW
     Route: 065
     Dates: start: 20091018
  24. ZUCLOPENTHIXOL [Suspect]
     Active Substance: ZUCLOPENTHIXOL
     Dosage: 400 MILLIGRAM, CYCLICAL (400 MG, CYCLIC (400 MG, BIWEEKLY)
     Route: 065
     Dates: start: 20040601, end: 20041018
  25. ZUCLOPENTHIXOL [Suspect]
     Active Substance: ZUCLOPENTHIXOL
     Dosage: 800 MILLIGRAM, EVERY WEEK
     Route: 065
     Dates: start: 20040601, end: 20041018
  26. ZUCLOPENTHIXOL [Suspect]
     Active Substance: ZUCLOPENTHIXOL
     Dosage: 800 MILLIGRAM, EVERY WEEK
     Route: 065
     Dates: start: 20030204, end: 20040217
  27. ZUCLOPENTHIXOL [Suspect]
     Active Substance: ZUCLOPENTHIXOL
     Dosage: 800 MILLIGRAM, EVERY WEEK,(400 MG, QW2, (18 OCT 2009)
     Route: 030
  28. ZUCLOPENTHIXOL [Suspect]
     Active Substance: ZUCLOPENTHIXOL
     Dosage: 800 MILLIGRAM, EVERY WEEK, (400 MG, QW2 )
     Route: 065
     Dates: start: 20041018, end: 20041018
  29. ZUCLOPENTHIXOL [Suspect]
     Active Substance: ZUCLOPENTHIXOL
     Dosage: 400 MG, BIW
     Route: 065
     Dates: start: 20040601, end: 20041018
  30. ZUCLOPENTHIXOL [Suspect]
     Active Substance: ZUCLOPENTHIXOL
     Dosage: 800 MILLIGRAM,
     Route: 065
     Dates: start: 20030204, end: 20040217
  31. ZUCLOPENTHIXOL [Suspect]
     Active Substance: ZUCLOPENTHIXOL
     Dosage: 300 MILLIGRAM EVERY WEEK
     Route: 065
     Dates: start: 20091018
  32. ZUCLOPENTHIXOL [Suspect]
     Active Substance: ZUCLOPENTHIXOL
     Dosage: 300 MILLIGRAM, ONCE A DAY
     Route: 065
     Dates: start: 20091009
  33. ZUCLOPENTHIXOL [Suspect]
     Active Substance: ZUCLOPENTHIXOL
     Dosage: 400 MILLIGRAM(400 MILLIGRAM, EVERY WEEK )
     Route: 065
  34. ZUCLOPENTHIXOL [Suspect]
     Active Substance: ZUCLOPENTHIXOL
     Dosage: 400 MILLIGRAM(400 MILLIGRAM, EVERY WEEK )
     Route: 065
  35. ZUCLOPENTHIXOL [Suspect]
     Active Substance: ZUCLOPENTHIXOL
     Dosage: 400 MILLIGRAM
     Route: 065
     Dates: start: 20091018
  36. ZUCLOPENTHIXOL [Suspect]
     Active Substance: ZUCLOPENTHIXOL
     Dosage: 800 MILLIGRAM
     Route: 065
     Dates: start: 20041018
  37. ZUCLOPENTHIXOL [Suspect]
     Active Substance: ZUCLOPENTHIXOL
     Dosage: 300 MILLIGRAM
     Route: 065
     Dates: start: 20091009
  38. ZUCLOPENTHIXOL [Suspect]
     Active Substance: ZUCLOPENTHIXOL
     Dosage: UNK
     Route: 065
  39. ZUCLOPENTHIXOL [Suspect]
     Active Substance: ZUCLOPENTHIXOL
     Dosage: 300 MILLIGRAM
     Route: 065
  40. ZUCLOPENTHIXOL [Suspect]
     Active Substance: ZUCLOPENTHIXOL
     Dosage: UNK
     Route: 065
  41. ZUCLOPENTHIXOL [Suspect]
     Active Substance: ZUCLOPENTHIXOL
     Dosage: UNK
     Route: 065
  42. ZUCLOPENTHIXOL [Suspect]
     Active Substance: ZUCLOPENTHIXOL
     Dosage: 400 MG
     Route: 065
  43. ZUCLOPENTHIXOL [Suspect]
     Active Substance: ZUCLOPENTHIXOL
     Dosage: 400 MG
     Route: 030
  44. ZUCLOPENTHIXOL [Suspect]
     Active Substance: ZUCLOPENTHIXOL
     Dosage: UNK
     Route: 065
  45. ZUCLOPENTHIXOL [Suspect]
     Active Substance: ZUCLOPENTHIXOL
     Dosage: UNK
     Route: 065
  46. ZUCLOPENTHIXOL [Suspect]
     Active Substance: ZUCLOPENTHIXOL
     Dosage: 400 MG
     Route: 065
  47. ZUCLOPENTHIXOL [Suspect]
     Active Substance: ZUCLOPENTHIXOL
     Dosage: 400 MG
     Route: 030
  48. ZUCLOPENTHIXOL [Suspect]
     Active Substance: ZUCLOPENTHIXOL
     Dosage: UNK
     Route: 065
  49. ZUCLOPENTHIXOL [Suspect]
     Active Substance: ZUCLOPENTHIXOL
     Dosage: UNK
     Route: 065
  50. CHLORPROMAZINE [Suspect]
     Active Substance: CHLORPROMAZINE
     Indication: Schizophrenia
     Dosage: 75 MILLIGRAM
     Route: 048
  51. CHLORPROMAZINE [Suspect]
     Active Substance: CHLORPROMAZINE
     Dosage: 75 MILLIGRAM
     Route: 065
  52. CLOZARIL [Suspect]
     Active Substance: CLOZAPINE
     Indication: Schizophrenia
     Dosage: 50 MILLIGRAM, ONCE A DAY
     Route: 065
  53. CLOZARIL [Suspect]
     Active Substance: CLOZAPINE
     Dosage: 100 MILLIGRAM, ONCE A DAY AM
     Route: 048
     Dates: start: 20150521
  54. CLOZARIL [Suspect]
     Active Substance: CLOZAPINE
     Dosage: 275 MILLIGRAM, ONCE A DAY PM
     Route: 065
  55. CLOZARIL [Suspect]
     Active Substance: CLOZAPINE
     Dosage: 300 MILLIGRAM, ONCE A DAY PM
     Route: 065
  56. CLOZARIL [Suspect]
     Active Substance: CLOZAPINE
     Dosage: 200 MILLIGRAM, TWO TIMES A DAY
     Route: 048
  57. CLOZARIL [Suspect]
     Active Substance: CLOZAPINE
     Dosage: 600 MILLIGRAM, ONCE A DAY
     Route: 065
     Dates: start: 2011
  58. CLOZARIL [Suspect]
     Active Substance: CLOZAPINE
     Dosage: 6000 MG
     Route: 065
     Dates: start: 20100823, end: 20100823
  59. CLOZARIL [Suspect]
     Active Substance: CLOZAPINE
     Dosage: 245 MILLIGRAM, ONCE A DAY
     Route: 065
     Dates: start: 2011
  60. CLOZARIL [Suspect]
     Active Substance: CLOZAPINE
     Dosage: 1 DOSAGE FORM, ONCE A DAY (1 DF, EACH MORNING)
     Route: 048
     Dates: start: 2011
  61. CLOZARIL [Suspect]
     Active Substance: CLOZAPINE
     Dosage: 245 MG
     Route: 048
     Dates: start: 20191207, end: 20191207
  62. CLOZARIL [Suspect]
     Active Substance: CLOZAPINE
     Dosage: 200 MILLIGRAM, TWO TIMES A DAY
     Route: 048
     Dates: start: 20191209, end: 20191223
  63. CLOZARIL [Suspect]
     Active Substance: CLOZAPINE
     Dosage: 245 MILLIGRAM, ONCE A DAY
     Route: 048
     Dates: start: 20191209, end: 20191223
  64. CLOZARIL [Suspect]
     Active Substance: CLOZAPINE
     Dosage: 50 MILLIGRAM, ONCE A DAY
     Route: 048
     Dates: start: 20191209, end: 20191223
  65. CLOZARIL [Suspect]
     Active Substance: CLOZAPINE
     Dosage: 275 MILLIGRAM, ONCE A DAY
     Route: 048
     Dates: start: 20200521
  66. CLOZARIL [Suspect]
     Active Substance: CLOZAPINE
     Dosage: UNK
     Route: 048
     Dates: start: 20201207
  67. CLOZARIL [Suspect]
     Active Substance: CLOZAPINE
     Dosage: 400 MG, QD
     Route: 048
     Dates: start: 20191223, end: 20191223
  68. CLOZARIL [Suspect]
     Active Substance: CLOZAPINE
     Dosage: 100 MILLIGRAM
     Route: 065
  69. CLOZARIL [Suspect]
     Active Substance: CLOZAPINE
     Dosage: 800 MILLIGRAM, ONCE A DAY
     Route: 048
     Dates: start: 20201207
  70. CLOZARIL [Suspect]
     Active Substance: CLOZAPINE
     Dosage: 245 MILLIGRAM
     Route: 048
     Dates: start: 20100823
  71. CLOZARIL [Suspect]
     Active Substance: CLOZAPINE
     Dosage: 1 DOSAGE FORM, QD (PM)
     Route: 065
     Dates: start: 2011
  72. CLOZARIL [Suspect]
     Active Substance: CLOZAPINE
     Dosage: 245 MILLIGRAM
     Route: 048
     Dates: start: 20200521
  73. CLOZARIL [Suspect]
     Active Substance: CLOZAPINE
     Dosage: UNK
     Route: 048
     Dates: start: 20200521
  74. CLOZARIL [Suspect]
     Active Substance: CLOZAPINE
     Dosage: 400 MILLIGRAM, ONCE A DAY
     Route: 048
     Dates: start: 20191223, end: 20191223
  75. CLOZARIL [Suspect]
     Active Substance: CLOZAPINE
     Dosage: 400 MILLIGRAM
     Route: 048
     Dates: start: 20100823
  76. CLOZARIL [Suspect]
     Active Substance: CLOZAPINE
     Dosage: 300 MILLIGRAM, ONCE A DAY
     Route: 048
  77. CLOZARIL [Suspect]
     Active Substance: CLOZAPINE
     Dosage: UNK
     Route: 065
     Dates: start: 20201207
  78. CLOZARIL [Suspect]
     Active Substance: CLOZAPINE
     Dosage: 400 MG, QD
     Route: 048
     Dates: start: 20100823
  79. CLOZARIL [Suspect]
     Active Substance: CLOZAPINE
     Dosage: 50 MG, QD
     Route: 048
     Dates: start: 20191209, end: 20191223
  80. CLOZARIL [Suspect]
     Active Substance: CLOZAPINE
     Dosage: 200 MILLIGRAM, ONCE A DAY
     Route: 048
  81. CLOZARIL [Suspect]
     Active Substance: CLOZAPINE
     Dosage: 800 MILLIGRAM, ONCE A DAY
     Route: 048
  82. CLOZARIL [Suspect]
     Active Substance: CLOZAPINE
     Dosage: 400 MILLIGRAM (200 MG, BID)
     Route: 048
  83. CLOZARIL [Suspect]
     Active Substance: CLOZAPINE
     Dosage: 400 MILLIGRAM, ONCE A DAY
     Route: 065
  84. CLOZARIL [Suspect]
     Active Substance: CLOZAPINE
     Dosage: 1 DOSAGE FORM, (1 DOSAGE FORM, (AT AM)
     Route: 065
  85. CLOZARIL [Suspect]
     Active Substance: CLOZAPINE
     Dosage: 6000 MILLIGRAM
     Route: 048
     Dates: start: 20191209, end: 20191223
  86. CLOZARIL [Suspect]
     Active Substance: CLOZAPINE
     Dosage: 6000 MILLIGRAM
     Route: 048
     Dates: start: 20100823, end: 20100823
  87. CLOZARIL [Suspect]
     Active Substance: CLOZAPINE
     Dosage: 400 MILLIGRAM, ONCE A DAY
     Route: 048
  88. CLOZARIL [Suspect]
     Active Substance: CLOZAPINE
     Dosage: 100 MILLIGRAM, ONCE A DAY
     Route: 048
  89. CLOZARIL [Suspect]
     Active Substance: CLOZAPINE
     Dosage: 245 MILLIGRAM
     Route: 048
     Dates: start: 20191223, end: 20191223
  90. CLOZARIL [Suspect]
     Active Substance: CLOZAPINE
     Dosage: 6000 MILLIGRAM
     Route: 065
     Dates: start: 20200521
  91. CLOZARIL [Suspect]
     Active Substance: CLOZAPINE
     Dosage: 6000 MILLIGRAM
     Route: 065
     Dates: start: 20201223, end: 20201223
  92. CLOZARIL [Suspect]
     Active Substance: CLOZAPINE
     Dosage: 50 MILLIGRAM, ONCE A DAY
     Route: 065
  93. CLOZARIL [Suspect]
     Active Substance: CLOZAPINE
     Dosage: 6000 MILLIGRAM
     Route: 048
     Dates: start: 20201207
  94. CLOZARIL [Suspect]
     Active Substance: CLOZAPINE
     Dosage: 275 MILLIGRAM, ONCE A DAY PM
     Route: 065
  95. CLOZARIL [Suspect]
     Active Substance: CLOZAPINE
     Dosage: 6000 MILLIGRAM
     Route: 065
     Dates: start: 20201223, end: 20201223
  96. CLOZARIL [Suspect]
     Active Substance: CLOZAPINE
     Dosage: 50 MILLIGRAM, ONCE A DAY
     Route: 065
     Dates: start: 20200521
  97. CLOZARIL [Suspect]
     Active Substance: CLOZAPINE
     Dosage: UNK
     Route: 048
     Dates: start: 2011
  98. CLOZARIL [Suspect]
     Active Substance: CLOZAPINE
     Dosage: 400 MILLIGRAM, ONCE A DAY
     Route: 065
  99. CLOZARIL [Suspect]
     Active Substance: CLOZAPINE
     Dosage: 275 MILLIGRAM, ONCE A DAY
     Route: 065
  100. CLOZARIL [Suspect]
     Active Substance: CLOZAPINE
     Dosage: 275 MILLIGRAM, ONCE A DAY
     Route: 065
  101. CLOZARIL [Suspect]
     Active Substance: CLOZAPINE
     Dosage: 400 MILLIGRAM, ONCE A DAY
     Route: 065
  102. CLOZARIL [Suspect]
     Active Substance: CLOZAPINE
     Dosage: 100 MG, QD (AM)
     Route: 065
  103. CLOZARIL [Suspect]
     Active Substance: CLOZAPINE
     Dosage: 100 MG
     Route: 065
  104. CLOZARIL [Suspect]
     Active Substance: CLOZAPINE
     Dosage: 1 DOSAGE FORM, QD
     Route: 048
  105. CLOZARIL [Suspect]
     Active Substance: CLOZAPINE
     Dosage: 300 MG, QD (PM)
     Route: 065
  106. CLOZARIL [Suspect]
     Active Substance: CLOZAPINE
     Dosage: UNK
     Route: 048
     Dates: start: 20200521, end: 2021
  107. CLOZARIL [Suspect]
     Active Substance: CLOZAPINE
     Dosage: 275 MG, QD
     Route: 048
     Dates: start: 20200521, end: 2020
  108. CLOZARIL [Suspect]
     Active Substance: CLOZAPINE
     Dosage: 275 MG, QD (PM)
     Route: 065
  109. CLOZARIL [Suspect]
     Active Substance: CLOZAPINE
     Dosage: 400 MG, QD (200 MG, BID)
     Route: 048
  110. CLOZARIL [Suspect]
     Active Substance: CLOZAPINE
     Dosage: 300 MG, QD (PM)
     Route: 065
  111. CLOZARIL [Suspect]
     Active Substance: CLOZAPINE
     Dosage: 6000 MG
     Route: 065
  112. CLOZARIL [Suspect]
     Active Substance: CLOZAPINE
     Dosage: UNK
     Route: 048
     Dates: end: 20220719
  113. CLOZARIL [Suspect]
     Active Substance: CLOZAPINE
     Dosage: 275 MG, QD
     Route: 048
  114. CLOZARIL [Suspect]
     Active Substance: CLOZAPINE
     Dosage: 245 MG
     Route: 048
     Dates: start: 20100823, end: 20200823
  115. CLOZARIL [Suspect]
     Active Substance: CLOZAPINE
     Dosage: UNK
     Route: 065
     Dates: start: 20191207, end: 20191223
  116. CLOZARIL [Suspect]
     Active Substance: CLOZAPINE
     Dosage: 50 MG, QD (MIDDAY)
     Route: 065
  117. CLOZARIL [Suspect]
     Active Substance: CLOZAPINE
     Dosage: 50 MG, QD, MIDDAY
     Route: 065
  118. DOCETAXEL [Suspect]
     Active Substance: DOCETAXEL\DOCETAXEL ANHYDROUS
     Indication: Breast cancer metastatic
     Dosage: UNK
     Route: 065
     Dates: start: 20151222
  119. DOCETAXEL [Suspect]
     Active Substance: DOCETAXEL\DOCETAXEL ANHYDROUS
     Dosage: 220 MILLIGRAM
     Route: 065
     Dates: start: 20150930, end: 20151021
  120. DOCETAXEL [Suspect]
     Active Substance: DOCETAXEL\DOCETAXEL ANHYDROUS
     Dosage: 110 MILLIGRAM (110 MG, Q3W CUMULATIVE DOSE: 324.98)/30 SEP 2015)
     Route: 042
     Dates: start: 20150930, end: 20151021
  121. DOCETAXEL [Suspect]
     Active Substance: DOCETAXEL\DOCETAXEL ANHYDROUS
     Dosage: 220 MILLIGRAM
     Route: 065
     Dates: start: 20151222
  122. HALOPERIDOL [Suspect]
     Active Substance: HALOPERIDOL
     Indication: Schizophrenia
     Dosage: 20 MILLIGRAM, ONCE A DAY
     Route: 048
  123. HALOPERIDOL [Suspect]
     Active Substance: HALOPERIDOL
     Dosage: 10 MILLIGRAM, TWO TIMES A DAY (5 MG, BID)
     Route: 048
  124. HALOPERIDOL [Suspect]
     Active Substance: HALOPERIDOL
     Dosage: 20 MILLIGRAM, TWO TIMES A DAY (10 MG, 2X/DAY)
     Route: 048
  125. HALOPERIDOL [Suspect]
     Active Substance: HALOPERIDOL
     Dosage: 10 MILLIGRAM, ONCE A DAY
     Route: 048
  126. HALOPERIDOL [Suspect]
     Active Substance: HALOPERIDOL
     Dosage: 40 MILLIGRAM, ONCE A DAY (20MG BID)
     Route: 048
  127. HALOPERIDOL [Suspect]
     Active Substance: HALOPERIDOL
     Dosage: 5 MILLIGRAM, ONCE A DAY
     Route: 065
  128. HALOPERIDOL [Suspect]
     Active Substance: HALOPERIDOL
     Dosage: 5 MILLIGRAM, TWO TIMES A DAY
     Route: 048
  129. HALOPERIDOL [Suspect]
     Active Substance: HALOPERIDOL
     Dosage: 5 MILLIGRAM, TWO TIMES A DAY
     Route: 065
  130. HALOPERIDOL [Suspect]
     Active Substance: HALOPERIDOL
     Dosage: 40 MILLIGRAM, ONCE A DAY,(20 MILLIGRAM, TWO TIMES A DAY (10 MG, 2X/DAY) )
     Route: 065
  131. HALOPERIDOL [Suspect]
     Active Substance: HALOPERIDOL
     Dosage: 20 MILLIGRAM,(20 MILLIGRAM, TWO TIMES A DAY (10 MG, 2X/DAY)
     Route: 065
  132. HALOPERIDOL [Suspect]
     Active Substance: HALOPERIDOL
     Dosage: 10 MILLIGRAM, ONCE A DAY,(5 MILLIGRAM, BID(2X/DAY) )
     Route: 065
  133. HALOPERIDOL [Suspect]
     Active Substance: HALOPERIDOL
     Dosage: 40 MILLIGRAM, ONCE A DAY,(40 MILLIGRAM, ONCE A DAY (20MG BID) )
     Route: 065
  134. HALOPERIDOL [Suspect]
     Active Substance: HALOPERIDOL
     Dosage: 10 MILLIGRAM, ONCE A DAY,(10 MG, QD )
     Route: 065
  135. HALOPERIDOL [Suspect]
     Active Substance: HALOPERIDOL
     Dosage: 5 MILLIGRAM, ONCE A DAY
     Route: 065
  136. HALOPERIDOL [Suspect]
     Active Substance: HALOPERIDOL
     Dosage: 20 MILLIGRAM, ONCE A DAY
     Route: 065
  137. HALOPERIDOL [Suspect]
     Active Substance: HALOPERIDOL
     Dosage: 20 MILLIGRAM, TWO TIMES A DAY,(10 MG, BID(2X/DAY) )
     Route: 065
  138. HALOPERIDOL [Suspect]
     Active Substance: HALOPERIDOL
     Dosage: 20 MILLIGRAM, ONCE A DAY,(20 MG, QD )
     Route: 065
  139. HALOPERIDOL [Suspect]
     Active Substance: HALOPERIDOL
     Dosage: UNK
     Route: 065
  140. HALDOL [Suspect]
     Active Substance: HALOPERIDOL
     Indication: Schizophrenia
     Dosage: 40 MILLIGRAM, ONCE A DAY
     Route: 048
  141. HALDOL [Suspect]
     Active Substance: HALOPERIDOL
     Dosage: 5 MILLIGRAM, ONCE A DAY
     Route: 048
  142. HALDOL [Suspect]
     Active Substance: HALOPERIDOL
     Dosage: 10 MILLIGRAM, ONCE A DAY
     Route: 048
  143. HALDOL [Suspect]
     Active Substance: HALOPERIDOL
     Dosage: 20 MILLIGRAM, ONCE A DAY
     Route: 048
  144. LITHIUM [Suspect]
     Active Substance: LITHIUM
     Indication: Schizophrenia
     Dosage: 1 GRAM
     Route: 048
  145. LITHIUM [Suspect]
     Active Substance: LITHIUM
     Dosage: 2 GRAM, ONCE A DAY
     Route: 048
  146. LITHIUM [Suspect]
     Active Substance: LITHIUM
     Dosage: 6 MILLIGRAM, ONCE A DAY
     Route: 065
  147. LITHIUM [Suspect]
     Active Substance: LITHIUM
     Dosage: 1 MILLIGRAM
     Route: 048
  148. LITHIUM [Suspect]
     Active Substance: LITHIUM
     Dosage: 2 MILLIGRAM
     Route: 065
  149. LITHIUM [Suspect]
     Active Substance: LITHIUM
     Dosage: 1 GRAM
     Route: 065
  150. LITHIUM [Suspect]
     Active Substance: LITHIUM
     Dosage: 1 GRAM
     Route: 065
  151. LORAZEPAM [Suspect]
     Active Substance: LORAZEPAM
     Indication: Schizophrenia
     Dosage: UNK
     Route: 065
  152. LORAZEPAM [Suspect]
     Active Substance: LORAZEPAM
     Dosage: 1 MILLIGRAM
     Route: 048
  153. LORAZEPAM [Suspect]
     Active Substance: LORAZEPAM
     Dosage: 15 MILLIGRAM
     Route: 065
     Dates: start: 20060704
  154. LORAZEPAM [Suspect]
     Active Substance: LORAZEPAM
     Dosage: 1 MILLIGRAM
     Route: 048
  155. PACLITAXEL [Suspect]
     Active Substance: PACLITAXEL
     Indication: Breast cancer metastatic
     Dosage: 150 MILLIGRAM, EVERY WEEK
     Route: 042
  156. PACLITAXEL [Suspect]
     Active Substance: PACLITAXEL
     Dosage: 120 MILLIGRAM, EVERY WEEK
     Route: 065
     Dates: start: 20151111, end: 20151222
  157. PACLITAXEL [Suspect]
     Active Substance: PACLITAXEL
     Dosage: 150 MILLIGRAM, EVERY WEEK
     Route: 042
     Dates: start: 20151111, end: 20151122
  158. PACLITAXEL [Suspect]
     Active Substance: PACLITAXEL
     Dosage: 120 MILLIGRAM, EVERY WEEK
     Route: 042
     Dates: start: 20151223, end: 20151223
  159. PERTUZUMAB [Suspect]
     Active Substance: PERTUZUMAB
     Indication: Breast cancer metastatic
     Dosage: 840 MILLIGRAM (840 MG, Q3W (CUMULATIVE DOSE: 2481.6667 MG)
     Route: 042
     Dates: start: 20150930
  160. PERTUZUMAB [Suspect]
     Active Substance: PERTUZUMAB
     Dosage: 420  MILLIGRAM (EVERY 3 WEEKS)
     Route: 042
     Dates: start: 20151021
  161. PERTUZUMAB [Suspect]
     Active Substance: PERTUZUMAB
     Dosage: 420 MILLIGRAM, EVERY WEEK
     Route: 042
     Dates: start: 20151021
  162. PERTUZUMAB [Suspect]
     Active Substance: PERTUZUMAB
     Dosage: 420 MILLIGRAM (420 MG, Q3W)
     Route: 042
  163. PERTUZUMAB [Suspect]
     Active Substance: PERTUZUMAB
     Dosage: 2 INTERNATIONAL UNIT, EVERY WEEK
     Route: 042
  164. PERTUZUMAB [Suspect]
     Active Substance: PERTUZUMAB
     Dosage: 420 MILLIGRAM
     Route: 042
  165. RISPERDAL [Suspect]
     Active Substance: RISPERIDONE
     Indication: Schizophrenia
     Dosage: 1 GRAM, ONCE A DAY
     Route: 065
  166. RISPERDAL [Suspect]
     Active Substance: RISPERIDONE
     Dosage: 3 MILLIGRAM, TWO TIMES A DAY (3 MG, BID)
     Route: 048
  167. RISPERDAL [Suspect]
     Active Substance: RISPERIDONE
     Dosage: 2 MILLIGRAM, TWO TIMES A DAY
     Route: 065
  168. RISPERDAL [Suspect]
     Active Substance: RISPERIDONE
     Dosage: 1 MILLIGRAM, ONCE A DAY (QD)
     Route: 048
  169. RISPERDAL [Suspect]
     Active Substance: RISPERIDONE
     Dosage: 4 MILLIGRAM, ONCE A DAY (4 MG, QD)
     Route: 065
  170. RISPERDAL [Suspect]
     Active Substance: RISPERIDONE
     Dosage: 6 MILLIGRAM, ONCE A DAY (6 MG, QD)
     Route: 048
  171. RISPERDAL [Suspect]
     Active Substance: RISPERIDONE
     Dosage: 3 MILLIGRAM, ONCE A DAY
     Route: 065
  172. RISPERDAL [Suspect]
     Active Substance: RISPERIDONE
     Dosage: 4 MILLIGRAM, ONCE A DAY,(4 MG QD)
     Route: 065
  173. RISPERDAL [Suspect]
     Active Substance: RISPERIDONE
     Dosage: 6 MILLIGRAM, TWO TIMES A DAY
     Route: 048
  174. RISPERDAL [Suspect]
     Active Substance: RISPERIDONE
     Dosage: 8 MILLIGRAM, ONCE A DAY
     Route: 048
  175. TRASTUZUMAB [Suspect]
     Active Substance: TRASTUZUMAB
     Indication: Breast cancer metastatic
     Dosage: 1827 MILLIGRAM, EVERY WEEK
     Route: 065
  176. TRASTUZUMAB [Suspect]
     Active Substance: TRASTUZUMAB
     Dosage: 840 MILLIGRAM ( 3 WEEKS)
     Route: 065
  177. TRASTUZUMAB [Suspect]
     Active Substance: TRASTUZUMAB
     Dosage: 420 MILLIGRAM ( 3 WEEKS)
     Route: 065
     Dates: start: 20150930
  178. TRASTUZUMAB [Suspect]
     Active Substance: TRASTUZUMAB
     Dosage: 609 MILLIGRAM (EVERY 3 WEEKS)
     Route: 042
     Dates: start: 20150930
  179. TRASTUZUMAB [Suspect]
     Active Substance: TRASTUZUMAB
     Dosage: 1218 MILLIGRAM, EVERY WEEK
     Route: 042
     Dates: start: 20150930
  180. TRASTUZUMAB [Suspect]
     Active Substance: TRASTUZUMAB
     Dosage: 609 MG, BIW (1799.20 MG)
     Route: 042
     Dates: start: 20150930
  181. TRASTUZUMAB [Suspect]
     Active Substance: TRASTUZUMAB
     Dosage: 1218 MILLIGRAM
     Route: 065
     Dates: start: 20151130
  182. XGEVA [Suspect]
     Active Substance: DENOSUMAB
     Indication: Metastases to bone
     Dosage: 120 MILLIGRAM (EVERY 9 WEEKS)
     Route: 058
     Dates: start: 20150930
  183. XGEVA [Suspect]
     Active Substance: DENOSUMAB
     Indication: Gastrooesophageal reflux disease
     Dosage: 120 MG, EVERY 9 WEEKS/30 SEP 2015120 MG,(CUMULATIVE DOSE: 118.174)
     Route: 058
     Dates: start: 20150930
  184. XGEVA [Suspect]
     Active Substance: DENOSUMAB
     Indication: Metastases to bone
     Dosage: 120 MG, QD (625 MG, QID)
     Route: 065
  185. ZUCLOPENTHIXOL [Suspect]
     Active Substance: ZUCLOPENTHIXOL
     Indication: Product used for unknown indication
     Dosage: 800 MILLIGRAM, EVERY WEEK
     Route: 065
     Dates: start: 20030204, end: 20040217
  186. ZUCLOPENTHIXOL [Suspect]
     Active Substance: ZUCLOPENTHIXOL
     Dosage: 400 MG, BIW CYCLICAL (400 MG, BIWEEKLY)
     Route: 065
     Dates: start: 20040217, end: 20040601
  187. ZUCLOPENTHIXOL [Suspect]
     Active Substance: ZUCLOPENTHIXOL
     Dosage: 400 MILLIGRAM, EVERY WEEK
     Route: 065
     Dates: start: 20040217, end: 20040601
  188. ZUCLOPENTHIXOL [Suspect]
     Active Substance: ZUCLOPENTHIXOL
     Dosage: 400 MILLIGRAM, CYCLICAL
     Route: 065
     Dates: start: 20040601, end: 20041018
  189. ZUCLOPENTHIXOL [Suspect]
     Active Substance: ZUCLOPENTHIXOL
     Dosage: 800 MILLIGRAM, EVERY WEEK
     Route: 065
     Dates: start: 20040601, end: 20041018
  190. ZUCLOPENTHIXOL [Suspect]
     Active Substance: ZUCLOPENTHIXOL
     Dosage: 800 MILLIGRAM, EVERY WEEK
     Route: 065
     Dates: start: 20041018, end: 20041018
  191. ZUCLOPENTHIXOL [Suspect]
     Active Substance: ZUCLOPENTHIXOL
     Dosage: 300 MILLIGRAM
     Route: 030
     Dates: start: 20091009
  192. ZUCLOPENTHIXOL [Suspect]
     Active Substance: ZUCLOPENTHIXOL
     Dosage: 300 MILLIGRAM, EVERY WEEK
     Route: 030
     Dates: start: 20091009
  193. ZUCLOPENTHIXOL [Suspect]
     Active Substance: ZUCLOPENTHIXOL
     Dosage: 300 MILLIGRAM, EVERY WEEK
     Route: 065
  194. CALCIUM\CHOLECALCIFEROL [Concomitant]
     Active Substance: CALCIUM\CHOLECALCIFEROL
     Indication: Product used for unknown indication
     Dosage: 2 DOSAGE FORM, ONCE A DAY
     Route: 048
  195. CALCIUM\CHOLECALCIFEROL [Concomitant]
     Active Substance: CALCIUM\CHOLECALCIFEROL
     Dosage: 2 DOSAGE FORM, ONCE A DAY
     Route: 048
     Dates: start: 20091018
  196. CALCIUM\CHOLECALCIFEROL [Concomitant]
     Active Substance: CALCIUM\CHOLECALCIFEROL
     Dosage: 2 DOSAGE FORM, QD
     Route: 065
     Dates: start: 20091018
  197. AMOXICILLIN\CLAVULANATE POTASSIUM [Concomitant]
     Active Substance: AMOXICILLIN\CLAVULANATE POTASSIUM
     Indication: Febrile neutropenia
     Dosage: 625 MILLIGRAM (EVERY 0.33 DAYS)
     Route: 048
     Dates: start: 20151122, end: 20151125
  198. AMOXICILLIN\CLAVULANATE POTASSIUM [Concomitant]
     Active Substance: AMOXICILLIN\CLAVULANATE POTASSIUM
     Dosage: 625 MG (120 MG, OTHER (EVERY 9 WEEKS))
     Route: 065
     Dates: start: 20151111
  199. AMOXICILLIN\CLAVULANATE POTASSIUM [Concomitant]
     Active Substance: AMOXICILLIN\CLAVULANATE POTASSIUM
     Dosage: 2500 MILLIGRAM, ONCE A DAY
     Route: 048
     Dates: start: 20151122, end: 20151125
  200. AMOXICILLIN\CLAVULANATE POTASSIUM [Concomitant]
     Active Substance: AMOXICILLIN\CLAVULANATE POTASSIUM
     Dosage: 635 MILLIGRAM
     Route: 048
     Dates: start: 20151122
  201. CHOLECALCIFEROL [Concomitant]
     Active Substance: CHOLECALCIFEROL
     Indication: Product used for unknown indication
     Dosage: 2 DOSAGE FORM, ONCE A DAY
     Route: 048
  202. CHOLECALCIFEROL [Concomitant]
     Active Substance: CHOLECALCIFEROL
     Dosage: 2 DOSAGE FORM, QD
     Route: 048
  203. CHOLECALCIFEROL [Concomitant]
     Active Substance: CHOLECALCIFEROL
     Dosage: 2 DOSAGE FORM, QD
     Route: 048
  204. CHLORPHENIRAMINE MALEATE [Concomitant]
     Active Substance: CHLORPHENIRAMINE MALEATE
     Indication: Product used for unknown indication
     Dosage: 10 MILLIGRAM, EVERY WEEK
     Route: 058
     Dates: start: 20151111
  205. CHLORPHENIRAMINE MALEATE [Concomitant]
     Active Substance: CHLORPHENIRAMINE MALEATE
     Dosage: 10 MG, QW (CUMULATIVE DOSE 28.57)
     Route: 058
     Dates: start: 20151111
  206. DULOXETINE [Concomitant]
     Active Substance: DULOXETINE
     Indication: Product used for unknown indication
     Dosage: UNK
     Route: 065
  207. DULOXETINE [Concomitant]
     Active Substance: DULOXETINE
     Dosage: UNK
     Route: 065
  208. GENTAMICIN [Concomitant]
     Active Substance: GENTAMICIN
     Indication: Febrile neutropenia
     Dosage: UNK
     Route: 042
     Dates: start: 20151121, end: 201511
  209. LEVOFLOXACIN [Concomitant]
     Active Substance: LEVOFLOXACIN
     Indication: Febrile neutropenia
     Dosage: 500 MG, QD (CUMULATIVE DOSE: 3000)
     Route: 048
     Dates: start: 20151125
  210. LEVOFLOXACIN [Concomitant]
     Active Substance: LEVOFLOXACIN
     Dosage: 500 MG, QD (CUMULATIVE DOSE: 3000)
     Route: 042
     Dates: start: 20151125
  211. MORPHINE [Concomitant]
     Active Substance: MORPHINE
     Indication: Pain
     Dosage: 30 MILLIGRAM, ONCE A DAY
     Route: 048
     Dates: start: 201509
  212. MORPHINE [Concomitant]
     Active Substance: MORPHINE
     Dosage: 60 MILLIGRAM, ONCE A DAY (30 MG (EVERY 0.5 DAY))
     Route: 048
     Dates: start: 201509
  213. MORPHINE [Concomitant]
     Active Substance: MORPHINE
     Dosage: 15 MG, QD
     Route: 065
     Dates: start: 201510
  214. MIRTAZAPINE [Concomitant]
     Active Substance: MIRTAZAPINE
     Indication: Product used for unknown indication
     Dosage: 15 MG, QD
     Route: 048
     Dates: start: 201510
  215. MORPHINE SULFATE [Concomitant]
     Active Substance: MORPHINE SULFATE
     Indication: Product used for unknown indication
     Dosage: 10 MG
     Route: 065
     Dates: start: 201509
  216. ACETAMINOPHEN [Concomitant]
     Active Substance: ACETAMINOPHEN
     Indication: Pain
     Dosage: 15 MILLIGRAM, ONCE A DAY
     Route: 065
  217. ACETAMINOPHEN [Concomitant]
     Active Substance: ACETAMINOPHEN
     Dosage: 500 MG (DOSE FORM 245)
     Route: 048
     Dates: start: 20150127
  218. ACETAMINOPHEN [Concomitant]
     Active Substance: ACETAMINOPHEN
     Dosage: 15 MILLIGRAM, ONCE A DAY
     Route: 065
     Dates: start: 201510
  219. PREGABALIN [Concomitant]
     Active Substance: PREGABALIN
     Indication: Product used for unknown indication
     Dosage: 150 MILLIGRAM, ONCE A DAY
     Route: 048
     Dates: start: 201509
  220. PREGABALIN [Concomitant]
     Active Substance: PREGABALIN
     Dosage: 150 MG, QD (75 MG, BID)
     Route: 048
     Dates: start: 201509
  221. PREGABALIN [Concomitant]
     Active Substance: PREGABALIN
     Dosage: 150 MILLIGRAM, ONCE A DAY
     Route: 065
  222. RANITIDINE [Concomitant]
     Active Substance: RANITIDINE
     Indication: Gastrooesophageal reflux disease
     Dosage: 50 MILLIGRAM, EVERY WEEK
     Route: 058
  223. RANITIDINE [Concomitant]
     Active Substance: RANITIDINE
     Dosage: 50 MILLIGRAM, EVERY WEEK
     Route: 058
     Dates: start: 20151111
  224. RANITIDINE [Concomitant]
     Active Substance: RANITIDINE
     Dosage: 50 MG, QW
     Route: 058
     Dates: start: 20151111
  225. RANITIDINE [Concomitant]
     Active Substance: RANITIDINE
     Dosage: 150 MILLIGRAM, EVERY WEEK
     Route: 065
  226. RANITIDINE [Concomitant]
     Active Substance: RANITIDINE
     Dosage: 75 MG (75 MG, WEEKLY (1/W))
     Route: 058
  227. RANITIDINE [Concomitant]
     Active Substance: RANITIDINE
     Dosage: 150 MG, QW (50 MG, QWK)
     Route: 058
  228. RANITIDINE [Concomitant]
     Active Substance: RANITIDINE
     Dosage: 75 MG (75 MG, WEEKLY (1/W))
  229. RANITIDINE [Concomitant]
     Active Substance: RANITIDINE
     Dosage: 150 MG, QW (50 MG, QWK)
     Route: 058
  230. PIPERACILLIN SODIUM\TAZOBACTAM SODIUM [Concomitant]
     Active Substance: PIPERACILLIN SODIUM\TAZOBACTAM SODIUM
     Indication: Febrile neutropenia
     Dosage: UNK
     Route: 065
     Dates: start: 20151121, end: 201511
  231. TAZOBACTAM SODIUM [Concomitant]
     Active Substance: TAZOBACTAM SODIUM
     Indication: Febrile neutropenia
     Dosage: UNK
     Route: 065
     Dates: start: 20151121

REACTIONS (35)
  - Alopecia [Fatal]
  - Affective disorder [Fatal]
  - Cellulitis [Fatal]
  - COVID-19 [Fatal]
  - Disease progression [Fatal]
  - Diarrhoea [Fatal]
  - Delusion of grandeur [Fatal]
  - Dyspepsia [Fatal]
  - Extrapyramidal disorder [Fatal]
  - Fatigue [Fatal]
  - Hospitalisation [Fatal]
  - Hallucination, auditory [Fatal]
  - Leukopenia [Fatal]
  - Lymphocyte count abnormal [Fatal]
  - Lymphocyte count decreased [Fatal]
  - Mucosal inflammation [Fatal]
  - Nausea [Fatal]
  - Neutropenia [Fatal]
  - Neuropathy peripheral [Fatal]
  - Neutrophil count decreased [Fatal]
  - Neutrophil count increased [Fatal]
  - Platelet count decreased [Fatal]
  - Psychotic disorder [Fatal]
  - Rhinalgia [Fatal]
  - Schizophrenia [Fatal]
  - Intentional product misuse [Fatal]
  - Seizure [Fatal]
  - SARS-CoV-2 test positive [Fatal]
  - Leukocytosis [Fatal]
  - Neoplasm progression [Fatal]
  - Thrombocytopenia [Fatal]
  - Incorrect dose administered [Fatal]
  - Off label use [Fatal]
  - Overdose [Fatal]
  - Extra dose administered [Unknown]

NARRATIVE: CASE EVENT DATE: 20151101
